FAERS Safety Report 13070678 (Version 3)
Quarter: 2017Q4

REPORT INFORMATION
  Report Type: Report from Study
  Country: JP (occurrence: JP)
  Receive Date: 20161229
  Receipt Date: 20171228
  Transmission Date: 20180320
  Serious: Yes (Death, Life-Threatening, Other)
  Sender: FDA-Public Use
  Company Number: JP-BRISTOL-MYERS SQUIBB COMPANY-BMS-2016-110661

PATIENT
  Age: 63 Year
  Sex: Male

DRUGS (3)
  1. MAXIPIME [Suspect]
     Active Substance: CEFEPIME HYDROCHLORIDE
     Indication: PRODUCT USED FOR UNKNOWN INDICATION
     Route: 065
  2. DACARBAZINE. [Suspect]
     Active Substance: DACARBAZINE
     Indication: PRODUCT USED FOR UNKNOWN INDICATION
     Dosage: UNK
     Route: 065
     Dates: start: 201311, end: 201601
  3. NIVOLUMAB [Suspect]
     Active Substance: NIVOLUMAB
     Indication: MALIGNANT MELANOMA
     Dosage: 3 MG/KG, UNK
     Route: 041
     Dates: start: 20160329, end: 20170215

REACTIONS (2)
  - Hepatic function abnormal [Recovered/Resolved]
  - Myelodysplastic syndrome [Fatal]

NARRATIVE: CASE EVENT DATE: 20160822
